FAERS Safety Report 12164360 (Version 2)
Quarter: 2016Q2

REPORT INFORMATION
  Report Type: Spontaneous
  Country: US (occurrence: US)
  Receive Date: 20160309
  Receipt Date: 20160516
  Transmission Date: 20160815
  Serious: Yes (Disabling)
  Sender: FDA-Public Use
  Company Number: US-LPDUSPRD-20160200

PATIENT
  Sex: Male

DRUGS (1)
  1. DEXAMETHASONE SODIUM PHOSPHATE INJECTION, USP (4901-25) [Suspect]
     Active Substance: DEXAMETHASONE SODIUM PHOSPHATE
     Dosage: DOSE NOT PROVIDED
     Route: 051
     Dates: start: 201202, end: 201202

REACTIONS (3)
  - Muscle disorder [Recovered/Resolved with Sequelae]
  - Bone loss [Recovered/Resolved with Sequelae]
  - Expired product administered [Unknown]

NARRATIVE: CASE EVENT DATE: 201202
